FAERS Safety Report 24367837 (Version 1)
Quarter: 2024Q3

REPORT INFORMATION
  Report Type: Spontaneous
  Country: FR (occurrence: FR)
  Receive Date: 20240926
  Receipt Date: 20240926
  Transmission Date: 20241016
  Serious: Yes (Other)
  Sender: GILEAD
  Company Number: FR-GILEAD-2024-0688859

PATIENT

DRUGS (1)
  1. YESCARTA [Suspect]
     Active Substance: AXICABTAGENE CILOLEUCEL
     Indication: Product used for unknown indication
     Route: 065

REACTIONS (2)
  - Epstein-Barr virus infection reactivation [Unknown]
  - Haemophagocytic lymphohistiocytosis [Unknown]
